FAERS Safety Report 7494118-7 (Version None)
Quarter: 2011Q2

REPORT INFORMATION
  Report Type: 
  Country: None (occurrence: None)
  Receive Date: 20110520
  Receipt Date: 20110519
  Transmission Date: 20111010
  Serious: Yes (Hospitalization)
  Sender: FDA-Public Use
  Company Number: US-PFIZER INC-2011108429

PATIENT
  Sex: Female
  Weight: 73 kg

DRUGS (4)
  1. CHANTIX [Suspect]
     Indication: SMOKING CESSATION THERAPY
     Dosage: 0.5 MG, 1X/DAY
     Route: 048
     Dates: start: 20100601, end: 20100701
  2. CHANTIX [Suspect]
     Dosage: UNK
     Dates: start: 20101001, end: 20101101
  3. CHANTIX [Suspect]
     Dosage: UNK
     Dates: start: 20100801, end: 20100901
  4. CHANTIX [Suspect]
     Dosage: UNK
     Dates: start: 20110301, end: 20110101

REACTIONS (2)
  - PNEUMONIA [None]
  - CATARACT OPERATION [None]
